FAERS Safety Report 5017045-3 (Version None)
Quarter: 2006Q2

REPORT INFORMATION
  Report Type: 
  Country: None (occurrence: None)
  Receive Date: 20060526
  Receipt Date: 20060518
  Transmission Date: 20061013
  Serious: Yes (Other)
  Sender: FDA-Public Use
  Company Number: 2005BI018828

PATIENT
  Age: 57 Year
  Sex: Female

DRUGS (20)
  1. AVONEX [Suspect]
     Indication: MULTIPLE SCLEROSIS
     Dosage: 30 UG;QW;IM
     Route: 030
     Dates: start: 20020407
  2. AVONEX [Suspect]
     Indication: MULTIPLE SCLEROSIS
     Dosage: 30 UG;QW;IM
     Route: 030
  3. METFORMIN [Concomitant]
  4. SALAGEN [Concomitant]
  5. VERAPAMIL [Concomitant]
  6. NEURONTIN [Concomitant]
  7. LEVOTHYROXINE SODIUM [Concomitant]
  8. COLACE [Concomitant]
  9. ASPIRIN [Concomitant]
  10. POTASSIUM CHLORIDE [Concomitant]
  11. LASIX [Concomitant]
  12. ZOLOFT [Concomitant]
  13. FLONASE [Concomitant]
  14. CENTRUM [Concomitant]
  15. INSULIN [Concomitant]
  16. BACLOFEN [Concomitant]
  17. SPIRIVA [Concomitant]
  18. LORTAB [Concomitant]
  19. XOPENEX [Concomitant]
  20. MECLIZINE [Concomitant]

REACTIONS (1)
  - PRECANCEROUS CELLS PRESENT [None]
